FAERS Safety Report 4667806-5 (Version None)
Quarter: 2005Q2

REPORT INFORMATION
  Report Type: 
  Country: None (occurrence: None)
  Receive Date: 20050520
  Receipt Date: 20050124
  Transmission Date: 20051028
  Serious: Yes (Death, Other)
  Sender: FDA-Public Use
  Company Number: US-MERCK-0501USA03637

PATIENT
  Age: 74 Year
  Sex: Male
  Weight: 86 kg

DRUGS (5)
  1. VIOXX [Suspect]
     Indication: ARTHRITIS
     Route: 048
     Dates: start: 20011201, end: 20021230
  2. BETOPTIC [Concomitant]
     Indication: GLAUCOMA
     Route: 065
  3. DARVOCET-N 100 [Concomitant]
     Route: 065
  4. ATENOLOL [Concomitant]
     Indication: HYPERTENSION
     Route: 048
     Dates: start: 20020721
  5. SAW PALMETTO STANDARDIZED EXTRACT [Concomitant]
     Route: 065
     Dates: start: 19990101

REACTIONS (5)
  - BLOOD CHOLESTEROL INCREASED [None]
  - DEATH [None]
  - EMOTIONAL DISTRESS [None]
  - MYOCARDIAL INFARCTION [None]
  - PAIN IN EXTREMITY [None]
